FAERS Safety Report 16827196 (Version 2)
Quarter: 2019Q3

REPORT INFORMATION
  Report Type: Spontaneous
  Country: US (occurrence: US)
  Receive Date: 20190919
  Receipt Date: 20190924
  Transmission Date: 20191005
  Serious: Yes (Hospitalization)
  Sender: FDA-Public Use
  Company Number: US-STRIDES ARCOLAB LIMITED-2019SP008919

PATIENT
  Age: 6 Decade
  Sex: Male

DRUGS (9)
  1. CLOZAPINE. [Concomitant]
     Active Substance: CLOZAPINE
     Indication: SCHIZOPHRENIA
     Dosage: 225 MG, EVERY MORNING (FOR A DECADE)
     Route: 048
  2. CLOZAPINE. [Concomitant]
     Active Substance: CLOZAPINE
     Dosage: 400 MG, AT BED TIME (FOR A DECADE)
     Route: 048
  3. CLOZAPINE. [Concomitant]
     Active Substance: CLOZAPINE
     Dosage: RESUMED AT HOME DOSE
     Route: 048
  4. MELOXICAM. [Suspect]
     Active Substance: MELOXICAM
     Indication: ARTHRALGIA
     Dosage: 15 MG, DAILY
     Route: 048
     Dates: start: 20171102, end: 201711
  5. DESMOPRESSIN [Interacting]
     Active Substance: DESMOPRESSIN
     Dosage: UNK, DOSE WAS GRADUALLY REDUCED
     Route: 048
  6. FLUOXETINE [Suspect]
     Active Substance: FLUOXETINE HYDROCHLORIDE
     Indication: AFFECTIVE DISORDER
     Dosage: 10 MG, DAILY
     Route: 048
     Dates: start: 20170718
  7. DESMOPRESSIN [Interacting]
     Active Substance: DESMOPRESSIN
     Indication: URINARY INCONTINENCE
     Dosage: 0.2 MG, DAILY (AT BEDTIME)
     Route: 048
     Dates: start: 20171010
  8. LAMOTRIGINE. [Concomitant]
     Active Substance: LAMOTRIGINE
     Indication: SEIZURE PROPHYLAXIS
  9. LAMOTRIGINE. [Concomitant]
     Active Substance: LAMOTRIGINE
     Indication: AFFECTIVE DISORDER
     Dosage: 100 MG, BID
     Route: 048
     Dates: start: 20170912

REACTIONS (4)
  - Drug interaction [Unknown]
  - Drug ineffective [Unknown]
  - Hyponatraemia [Recovered/Resolved]
  - Generalised tonic-clonic seizure [Recovered/Resolved]

NARRATIVE: CASE EVENT DATE: 2017
